FAERS Safety Report 13694241 (Version 2)
Quarter: 2017Q3

REPORT INFORMATION
  Report Type: Report from Study
  Country: IT (occurrence: IT)
  Receive Date: 20170627
  Receipt Date: 20170918
  Transmission Date: 20171127
  Serious: Yes (Hospitalization)
  Sender: FDA-Public Use
  Company Number: IT-EISAI MEDICAL RESEARCH-EC-2017-028834

PATIENT
  Age: 69 Year
  Sex: Female
  Weight: 89 kg

DRUGS (5)
  1. VIMPAT [Concomitant]
     Active Substance: LACOSAMIDE
  2. FYCOMPA [Suspect]
     Active Substance: PERAMPANEL
     Indication: PARTIAL SEIZURES
     Route: 048
     Dates: start: 20160928, end: 20170109
  3. FYCOMPA [Suspect]
     Active Substance: PERAMPANEL
     Route: 048
     Dates: start: 20170110, end: 20170111
  4. RIVOTRIL [Concomitant]
     Active Substance: CLONAZEPAM
  5. GARDENALE [Concomitant]
     Active Substance: PHENOBARBITAL

REACTIONS (3)
  - Mixed delusion [Not Recovered/Not Resolved]
  - Confusional state [Recovered/Resolved]
  - Ataxia [Recovered/Resolved]

NARRATIVE: CASE EVENT DATE: 20161225
